FAERS Safety Report 11842885 (Version 1)
Quarter: 2015Q4

REPORT INFORMATION
  Report Type: Spontaneous
  Country: US (occurrence: US)
  Receive Date: 20151216
  Receipt Date: 20151216
  Transmission Date: 20160305
  Serious: No
  Sender: FDA-Public Use
  Company Number: US-BAUSCH-SP09706

PATIENT
  Sex: Female
  Weight: 76.27 kg

DRUGS (2)
  1. APRISO [Suspect]
     Active Substance: MESALAMINE
     Indication: CROHN^S DISEASE
     Route: 048
     Dates: start: 201201
  2. APRISO [Suspect]
     Active Substance: MESALAMINE
     Route: 048

REACTIONS (3)
  - Red blood cell sedimentation rate increased [Unknown]
  - Overdose [Unknown]
  - Abdominal pain [Unknown]
